FAERS Safety Report 5507326-9 (Version None)
Quarter: 2007Q4

REPORT INFORMATION
  Report Type: 
  Country: None (occurrence: None)
  Receive Date: 20071102
  Receipt Date: 20071019
  Transmission Date: 20080405
  Serious: Yes (Other)
  Sender: FDA-Public Use
  Company Number: 163069ISR

PATIENT
  Sex: Female

DRUGS (4)
  1. LEVOTHYROXINE SODIUM [Suspect]
     Dosage: ORAL
     Route: 048
  2. CHLORPROMAZINE [Suspect]
     Dosage: ORAL
  3. VENLAFAXINE HCL [Suspect]
     Dosage: ORAL
     Route: 048
  4. ORLISTAT [Suspect]
     Dosage: ORAL
     Dates: start: 20040215, end: 20050915

REACTIONS (2)
  - DRUG INTERACTION [None]
  - PSYCHIATRIC SYMPTOM [None]
